FAERS Safety Report 17802236 (Version 7)
Quarter: 2021Q2

REPORT INFORMATION
  Report Type: Spontaneous
  Country: US (occurrence: US)
  Receive Date: 20200519
  Receipt Date: 20210407
  Transmission Date: 20210716
  Serious: No
  Sender: FDA-Public Use
  Company Number: US-PFIZER INC-2020197688

PATIENT
  Age: 87 Year
  Sex: Female
  Weight: 80.74 kg

DRUGS (2)
  1. LYRICA [Suspect]
     Active Substance: PREGABALIN
     Indication: BACK PAIN
  2. LYRICA [Suspect]
     Active Substance: PREGABALIN
     Indication: PAIN IN EXTREMITY
     Dosage: 75 MG, 2X/DAY
     Route: 048
     Dates: start: 2018

REACTIONS (10)
  - Tremor [Recovering/Resolving]
  - Confusional state [Unknown]
  - Balance disorder [Recovering/Resolving]
  - Withdrawal syndrome [Recovered/Resolved]
  - Vomiting [Unknown]
  - Hypoacusis [Unknown]
  - Diarrhoea [Unknown]
  - Polyuria [Recovering/Resolving]
  - Cognitive disorder [Unknown]
  - Palpitations [Recovering/Resolving]

NARRATIVE: CASE EVENT DATE: 202002
